FAERS Safety Report 6964591-9 (Version None)
Quarter: 2010Q3

REPORT INFORMATION
  Report Type: 
  Country: None (occurrence: None)
  Receive Date: 20100903
  Receipt Date: 20100819
  Transmission Date: 20110219
  Serious: Yes (Hospitalization)
  Sender: FDA-Public Use
  Company Number: US-BAYER-201028649NA

PATIENT
  Age: 20 Year
  Sex: Female
  Weight: 64 kg

DRUGS (19)
  1. YAZ [Suspect]
     Indication: MENSTRUATION IRREGULAR
     Route: 048
     Dates: start: 20080501, end: 20100401
  2. AZITHROMYCIN [Concomitant]
  3. CEPHALEXIN [Concomitant]
  4. FENTANYL CITRATE [Concomitant]
  5. TOPIRAMATE [Concomitant]
  6. PROPRANOLOL [Concomitant]
  7. MAXALT-MLT [Concomitant]
  8. FROVA [Concomitant]
  9. TREZIX [Concomitant]
  10. BUTORPHANOL TARTRATE [Concomitant]
  11. TRAMADOL HCL [Concomitant]
  12. POTASSIUM [Concomitant]
  13. VENTOLIN HFA [Concomitant]
  14. PROAIR HFA [Concomitant]
  15. NEXIUM [Concomitant]
  16. GLYCOPYRROLATE [Concomitant]
  17. ALLERGY DN II [Concomitant]
  18. ALLERGY DF [Concomitant]
  19. ADDERALL 10 [Concomitant]

REACTIONS (1)
  - GALLBLADDER INJURY [None]
